FAERS Safety Report 5673223-1 (Version None)
Quarter: 2008Q1

REPORT INFORMATION
  Report Type: 
  Country: None (occurrence: None)
  Receive Date: 20080319
  Receipt Date: 20080305
  Transmission Date: 20080703
  Serious: Yes (Hospitalization)
  Sender: FDA-Public Use
  Company Number: CA-SANOFI-SYNTHELABO-A01200802099

PATIENT
  Age: 71 Year
  Sex: Male

DRUGS (3)
  1. ARTHRITIS MEDICATIONS [Concomitant]
     Dosage: UNK
  2. 4 HYPERTENSIVE MEDICATIONS [Concomitant]
     Dosage: UNK
  3. ELIGARD [Suspect]
     Dates: start: 20070301

REACTIONS (3)
  - HEADACHE [None]
  - HOT FLUSH [None]
  - HYPERTENSION [None]
